FAERS Safety Report 12762548 (Version 1)
Quarter: 2016Q3

REPORT INFORMATION
  Report Type: Spontaneous
  Country: GB (occurrence: GB)
  Receive Date: 20160920
  Receipt Date: 20160920
  Transmission Date: 20161109
  Serious: Yes (Other)
  Sender: FDA-Public Use
  Company Number: GB-PFIZER INC-2016431262

PATIENT
  Age: 82 Year
  Sex: Male
  Weight: 82.5 kg

DRUGS (9)
  1. DOXAZOSIN [Concomitant]
     Active Substance: DOXAZOSIN\DOXAZOSIN MESYLATE
     Dosage: 4 MG, UNK
  2. LEVOTHYROXINE. [Concomitant]
     Active Substance: LEVOTHYROXINE
     Dosage: UNK
  3. AMLODIPINE BESILATE [Suspect]
     Active Substance: AMLODIPINE BESYLATE
     Indication: HYPERTENSION
     Dosage: 5 MG, UNK
     Route: 048
     Dates: start: 20160812, end: 20160902
  4. GLICLAZIDE [Concomitant]
     Active Substance: GLICLAZIDE
     Dosage: 240 MG, UNK
  5. VITAMINS NOS [Concomitant]
     Active Substance: VITAMINS
     Dosage: PRESERVISION
  6. OMEPRAZOLE. [Concomitant]
     Active Substance: OMEPRAZOLE
     Dosage: UNK
  7. HYDROCHLOROTHIAZIDE W/LISINOPRIL DIHYDRATE [Concomitant]
     Dosage: 20/12 MG
  8. HYDROCORTISONE. [Concomitant]
     Active Substance: HYDROCORTISONE
     Dosage: UNK
  9. FINASTERIDE. [Concomitant]
     Active Substance: FINASTERIDE
     Dosage: UNK

REACTIONS (5)
  - Hot flush [Recovered/Resolved with Sequelae]
  - Dizziness [Recovering/Resolving]
  - Pollakiuria [Recovering/Resolving]
  - Flushing [Recovered/Resolved with Sequelae]
  - Chest pain [Recovered/Resolved]

NARRATIVE: CASE EVENT DATE: 20160814
